FAERS Safety Report 4436583-5 (Version None)
Quarter: 2004Q3

REPORT INFORMATION
  Report Type: 
  Country: None (occurrence: None)
  Receive Date: 20040830
  Receipt Date: 20040708
  Transmission Date: 20050211
  Serious: No
  Sender: FDA-Public Use
  Company Number: US-BRISTOL-MYERS SQUIBB COMPANY-12635413

PATIENT
  Age: 62 Year
  Sex: Female
  Weight: 65 kg

DRUGS (4)
  1. ABILIFY [Suspect]
     Indication: BIPOLAR DISORDER
     Dosage: STOPPED AFTER 3 DAYS, RESUMED ON 08-JUL-2004
     Route: 048
  2. SYNTHROID [Concomitant]
  3. KLONOPIN [Concomitant]
  4. THIORIDAZINE [Concomitant]

REACTIONS (4)
  - ARTHRALGIA [None]
  - HEADACHE [None]
  - INSOMNIA [None]
  - MUSCLE CRAMP [None]
